FAERS Safety Report 10387115 (Version 2)
Quarter: 2014Q3

REPORT INFORMATION
  Report Type: Spontaneous
  Country: US (occurrence: US)
  Receive Date: 20140815
  Receipt Date: 20140815
  Transmission Date: 20150326
  Serious: Yes (Hospitalization, Other)
  Sender: FDA-Public Use
  Company Number: US-009507513-2009-201000-NL

PATIENT
  Sex: Female
  Weight: 69.4 kg

DRUGS (3)
  1. NUVARING [Suspect]
     Active Substance: ETHINYL ESTRADIOL\ETONOGESTREL
     Indication: CONTRACEPTION
     Dosage: DOSE TEXT: 3 WEEKS IN, 1 WEEK OUT, CONTINUING: NO
     Route: 067
     Dates: start: 200606, end: 200707
  2. FIORICET [Concomitant]
     Active Substance: ACETAMINOPHEN\BUTALBITAL\CAFFEINE
     Dosage: UNK DF, UNK
     Dates: start: 200205
  3. ACETAMINOPHEN (+) HYDROCODONE BITARTRATE [Concomitant]
     Active Substance: ACETAMINOPHEN\HYDROCODONE
     Dosage: UNK DF, UNK
     Dates: start: 200205

REACTIONS (10)
  - Skin hyperpigmentation [Unknown]
  - Spondylolisthesis [Unknown]
  - Back pain [Unknown]
  - Nephrolithiasis [Unknown]
  - Intervertebral disc protrusion [Unknown]
  - Migraine [Unknown]
  - Nasopharyngitis [Unknown]
  - Pulmonary embolism [Unknown]
  - Thrombosis [Unknown]
  - Acne [Unknown]

NARRATIVE: CASE EVENT DATE: 200607
